FAERS Safety Report 7397494-9 (Version None)
Quarter: 2011Q2

REPORT INFORMATION
  Report Type: 
  Country: None (occurrence: None)
  Receive Date: 20110406
  Receipt Date: 20110324
  Transmission Date: 20111010
  Serious: Yes (Hospitalization)
  Sender: FDA-Public Use
  Company Number: PHHY2011FR24442

PATIENT
  Sex: Male

DRUGS (7)
  1. CALCIUM FOLINATE [Concomitant]
     Dosage: UNK
  2. AVASTIN [Suspect]
     Indication: COLORECTAL CANCER METASTATIC
     Dosage: 5 MG/KG, UNK
     Dates: start: 20101222, end: 20110106
  3. METHYLPREDNISOLONE [Concomitant]
     Dosage: UNK
  4. ZOPHREN [Concomitant]
     Dosage: UNK
     Dates: start: 20101201, end: 20110101
  5. FLUOROURACIL [Suspect]
     Indication: COLORECTAL CANCER METASTATIC
     Dosage: 625 MG/M2, UNK
     Route: 042
     Dates: start: 20101222, end: 20110106
  6. ELOXATIN [Suspect]
     Indication: COLORECTAL CANCER METASTATIC
     Dosage: 1 DF, UNK
     Route: 042
     Dates: start: 20101222, end: 20110105
  7. FLUOROURACIL [Suspect]
     Dosage: 417 MG/M2, UNK
     Route: 040
     Dates: start: 20101222, end: 20110106

REACTIONS (5)
  - CHILLS [None]
  - THROMBOCYTOPENIA [None]
  - HAPTOGLOBIN DECREASED [None]
  - BLOOD PRESSURE INCREASED [None]
  - PYREXIA [None]
